FAERS Safety Report 5803887-0 (Version None)
Quarter: 2008Q3

REPORT INFORMATION
  Report Type: 
  Country: None (occurrence: None)
  Receive Date: 20080708
  Receipt Date: 20080626
  Transmission Date: 20090109
  Serious: Yes (Hospitalization)
  Sender: FDA-Public Use
  Company Number: FR-PFIZER INC-2008047088

PATIENT
  Sex: Female
  Weight: 66 kg

DRUGS (12)
  1. SU-011,248 [Suspect]
     Indication: BREAST CANCER METASTATIC
     Route: 048
     Dates: start: 20070730, end: 20071022
  2. SU-011,248 [Suspect]
     Dosage: DAILY DOSE:25MG-TEXT:25MGX1-FREQ:ONCE DAILY: CONTINOUS
     Route: 048
     Dates: start: 20071101, end: 20080518
  3. ESCITALOPRAM [Concomitant]
     Indication: ANXIETY
     Route: 048
  4. LORMETAZEPAM [Concomitant]
     Indication: INSOMNIA
     Route: 048
     Dates: start: 20060801
  5. PRAZEPAM [Concomitant]
     Route: 048
  6. CHLORHEXIDINE GLUCONATE [Concomitant]
     Route: 048
  7. SODIUM BICARBONATE [Concomitant]
     Route: 048
  8. LEVOTHYROXINE SODIUM [Concomitant]
     Route: 048
  9. METOPIMAZINE [Concomitant]
     Route: 048
  10. LOPERAMIDE HCL [Concomitant]
     Route: 048
  11. PHLOROGLUCINOL [Concomitant]
     Route: 048
  12. ACETAMINOPHEN [Concomitant]
     Route: 048

REACTIONS (2)
  - ENTEROCOLITIS INFECTIOUS [None]
  - URINARY TRACT INFECTION [None]
